FAERS Safety Report 12109012 (Version 7)
Quarter: 2025Q1

REPORT INFORMATION
  Report Type: Report from Study
  Country: CA (occurrence: CA)
  Receive Date: 20160224
  Receipt Date: 20250203
  Transmission Date: 20250409
  Serious: Yes (Other)
  Sender: ROCHE
  Company Number: CA-ROCHE-1715516

PATIENT
  Age: 51 Year
  Sex: Female
  Weight: 66.0 kg

DRUGS (2)
  1. XOLAIR [Suspect]
     Active Substance: OMALIZUMAB
     Indication: Asthma
     Route: 058
     Dates: start: 20140514, end: 20171130
  2. XOLAIR [Suspect]
     Active Substance: OMALIZUMAB
     Route: 058
     Dates: start: 20140514, end: 20171130

REACTIONS (13)
  - Respiratory tract infection bacterial [Unknown]
  - Productive cough [Unknown]
  - Sputum discoloured [Unknown]
  - Dyspnoea exertional [Unknown]
  - Dyspnoea [Unknown]
  - Wheezing [Unknown]
  - Weight decreased [Unknown]
  - Asthma [Unknown]
  - Middle insomnia [Unknown]
  - Drug ineffective [Unknown]
  - Cough [Not Recovered/Not Resolved]
  - Obstructive airways disorder [Unknown]
  - Pulmonary residual volume increased [Unknown]

NARRATIVE: CASE EVENT DATE: 20170331
